FAERS Safety Report 12336864 (Version 1)
Quarter: 2016Q2

REPORT INFORMATION
  Report Type: Spontaneous
  Country: US (occurrence: US)
  Receive Date: 20160505
  Receipt Date: 20160505
  Transmission Date: 20160815
  Serious: Yes (Hospitalization, Other)
  Sender: FDA-Public Use
  Company Number: US-MDT-ADR-2016-00803

PATIENT
  Age: 63 Year
  Sex: Male

DRUGS (1)
  1. BACLOFEN. [Suspect]
     Active Substance: BACLOFEN
     Route: 037

REACTIONS (4)
  - Chronic obstructive pulmonary disease [Unknown]
  - Terminal state [Unknown]
  - Medical device site erosion [Recovered/Resolved]
  - Medical device site infection [Recovered/Resolved]

NARRATIVE: CASE EVENT DATE: 2015
